FAERS Safety Report 12215345 (Version 2)
Quarter: 2016Q2

REPORT INFORMATION
  Report Type: Spontaneous
  Country: US (occurrence: US)
  Receive Date: 20160328
  Receipt Date: 20160407
  Transmission Date: 20160815
  Serious: Yes (Hospitalization, Other)
  Sender: FDA-Public Use
  Company Number: US-SUNOVION-2016SUN000739

PATIENT
  Age: 76 Year
  Sex: Female
  Weight: 87.5 kg

DRUGS (6)
  1. BUDESONIDE. [Concomitant]
     Active Substance: BUDESONIDE
     Indication: ASTHMA
     Dosage: UNK, BID
     Route: 055
     Dates: start: 201506
  2. XOLAIR [Concomitant]
     Active Substance: OMALIZUMAB
     Indication: ASTHMA
  3. ALBUTEROL. [Concomitant]
     Active Substance: ALBUTEROL
     Dosage: UNK
     Dates: end: 201506
  4. BROVANA [Suspect]
     Active Substance: ARFORMOTEROL TARTRATE
     Dosage: 15 ?G, UNK
     Route: 055
     Dates: start: 201603
  5. BROVANA [Suspect]
     Active Substance: ARFORMOTEROL TARTRATE
     Indication: CHRONIC OBSTRUCTIVE PULMONARY DISEASE
     Dosage: 15 ?G, BID
     Route: 055
     Dates: start: 20150615, end: 201603
  6. XOLAIR [Concomitant]
     Active Substance: OMALIZUMAB
     Indication: HYPERSENSITIVITY
     Dosage: ONE INJECTION Q 2 WEEKS

REACTIONS (11)
  - Herpes zoster [Unknown]
  - Skin exfoliation [Unknown]
  - Weight decreased [Unknown]
  - Pain in extremity [Unknown]
  - Rash erythematous [Unknown]
  - Pain [Unknown]
  - Cardiac disorder [Unknown]
  - Drug dose omission [Unknown]
  - Local swelling [Unknown]
  - Pneumonia [Unknown]
  - Neck pain [Unknown]

NARRATIVE: CASE EVENT DATE: 2015
